FAERS Safety Report 9031988 (Version 1)
Quarter: 2013Q1

REPORT INFORMATION
  Report Type: Spontaneous
  Country: JP (occurrence: JP)
  Receive Date: 20130125
  Receipt Date: 20130125
  Transmission Date: 20140127
  Serious: Yes (Other)
  Sender: FDA-Public Use
  Company Number: JP-ASTELLAS-2012JP009801

PATIENT
  Age: 29 Year
  Sex: Female
  Weight: 50 kg

DRUGS (2)
  1. BETANIS [Suspect]
     Indication: HYPERTONIC BLADDER
     Dosage: 50 MG, UID/QD
     Route: 048
     Dates: start: 20120202
  2. BUP-4 [Concomitant]
     Indication: HYPERTONIC BLADDER
     Dosage: 30 MG, UNKNOWN/D
     Route: 048
     Dates: start: 201203

REACTIONS (1)
  - Dysmenorrhoea [Unknown]
